FAERS Safety Report 8899992 (Version 1)
Quarter: 2012Q4

REPORT INFORMATION
  Report Type: 
  Country: FR (occurrence: FR)
  Receive Date: 20121109
  Receipt Date: 20121109
  Transmission Date: 20130627
  Serious: Yes (Hospitalization, Other)
  Sender: FDA-Public Use
  Company Number: PHHY2012FR102607

PATIENT
  Age: 90 Year
  Sex: Male

DRUGS (18)
  1. VALSARTAN [Suspect]
     Indication: HYPERTENSION
     Dosage: 1 DF, daily
     Route: 048
     Dates: end: 20120925
  2. JOSIR [Suspect]
     Indication: SEPSIS
     Dosage: 1 DF, daily
     Route: 048
     Dates: start: 20120817, end: 20120823
  3. CLAMOXYL [Suspect]
     Dosage: 1 DF, daily
     Route: 048
     Dates: end: 20120812
  4. SINTROM [Concomitant]
     Dosage: 0.5 DF,  (the evening,  every second day)
  5. SINTROM [Concomitant]
     Dosage: 0.75 DF,  (in the evening every other second day)
  6. KARDEGIC [Concomitant]
     Dosage: (1 sachet at midday)
  7. SOPROL [Concomitant]
     Dosage: 1 DF, every morning
  8. PRAVASTATINE [Concomitant]
     Dosage: 1 DF, every evening
  9. TRANSIPEG [Concomitant]
     Dosage: 5.9 g, as needed
  10. VASOBRAL [Concomitant]
     Dosage: (2 measures morning, midday and evening)
  11. STILNOX [Concomitant]
     Dosage: 1 DF, every evening
  12. DIFFU-K [Concomitant]
     Dosage: 1 DF, BID (morning and evening)
  13. SEROPLEX [Concomitant]
     Dosage: 1 DF, morning
  14. GLUCOSE 5% [Concomitant]
  15. AMOXICILLINE [Concomitant]
     Dosage: 2 g,slow IV route every 4 hours
     Route: 042
     Dates: end: 20120812
  16. GENTAMYCINE [Concomitant]
     Dosage: 80 mg, slow IV route
     Route: 042
     Dates: end: 20120729
  17. HUMALOG [Concomitant]
     Dosage: 4 IU,  if needed
  18. LANTUS [Concomitant]
     Dosage: 6 IU, every evening

REACTIONS (3)
  - Neutropenia [Recovered/Resolved]
  - Pseudomonas infection [Unknown]
  - Hyperthermia [Unknown]
